FAERS Safety Report 8181198-9 (Version None)
Quarter: 2012Q1

REPORT INFORMATION
  Report Type: 
  Country: None (occurrence: None)
  Receive Date: 20120302
  Receipt Date: 20120226
  Transmission Date: 20120608
  Serious: Yes (Other)
  Sender: FDA-Public Use
  Company Number: JP-GLAXOSMITHKLINE-B0779164A

PATIENT
  Age: 90 Year
  Sex: Male

DRUGS (6)
  1. FLOLAN [Suspect]
     Route: 042
     Dates: start: 20120131
  2. FLOLAN [Suspect]
     Route: 042
  3. FUROSEMIDE [Concomitant]
     Indication: PRODUCT USED FOR UNKNOWN INDICATION
     Route: 065
  4. TRACLEER [Concomitant]
     Indication: PRODUCT USED FOR UNKNOWN INDICATION
     Route: 048
  5. FLOLAN [Suspect]
     Indication: PULMONARY ARTERIAL HYPERTENSION
     Route: 042
     Dates: start: 20120124, end: 20120130
  6. FLOLAN [Suspect]
     Route: 042

REACTIONS (3)
  - PLEURAL EFFUSION [None]
  - BLOOD PRESSURE DECREASED [None]
  - OEDEMA [None]
